FAERS Safety Report 7276084-2 (Version None)
Quarter: 2011Q1

REPORT INFORMATION
  Report Type: 
  Country: None (occurrence: None)
  Receive Date: 20110204
  Receipt Date: 20110124
  Transmission Date: 20110831
  Serious: Yes (Hospitalization)
  Sender: FDA-Public Use
  Company Number: US-JNJFOC-20110106976

PATIENT
  Age: 14 Year
  Sex: Male

DRUGS (1)
  1. REMICADE [Suspect]
     Indication: INFLAMMATORY BOWEL DISEASE
     Route: 042

REACTIONS (2)
  - DRUG INEFFECTIVE [None]
  - INFLAMMATORY BOWEL DISEASE [None]
